FAERS Safety Report 5465174-2 (Version None)
Quarter: 2007Q3

REPORT INFORMATION
  Report Type: 
  Country: None (occurrence: None)
  Receive Date: 20070923
  Receipt Date: 20070912
  Transmission Date: 20080115
  Serious: Yes (Hospitalization)
  Sender: FDA-Public Use
  Company Number: JP-ALLERGAN-0710375US

PATIENT
  Sex: Male

DRUGS (6)
  1. BOTULINUM TOXIN TYPE A - GENERAL [Suspect]
     Indication: TORTICOLLIS
     Dosage: 60 UNITS, SINGLE
     Route: 030
     Dates: start: 20060814, end: 20060814
  2. BOTULINUM TOXIN TYPE A - GENERAL [Suspect]
     Dosage: 80 UNITS, SINGLE
     Route: 030
     Dates: start: 20061124, end: 20061124
  3. BOTULINUM TOXIN TYPE A - GENERAL [Suspect]
     Dosage: 65 UNITS, SINGLE
     Route: 030
     Dates: start: 20070326, end: 20070326
  4. BOTULINUM TOXIN TYPE A - GENERAL [Suspect]
     Dosage: 90 UNITS, SINGLE
     Route: 030
     Dates: start: 20070615, end: 20070615
  5. PHENYTOIN [Concomitant]
     Indication: EPILEPSY
     Dosage: 35 MG, QD
     Route: 048
  6. FLUDIAZEPAM [Concomitant]
     Indication: AGITATION
     Dosage: 0.25 MG, QD
     Route: 048

REACTIONS (4)
  - ILEUS PARALYTIC [None]
  - PYREXIA [None]
  - TONSILLITIS [None]
  - WHITE BLOOD CELL COUNT INCREASED [None]
